FAERS Safety Report 9627091 (Version 2)
Quarter: 2013Q4

REPORT INFORMATION
  Report Type: Spontaneous
  Country: JP (occurrence: JP)
  Receive Date: 20131016
  Receipt Date: 20131111
  Transmission Date: 20140711
  Serious: Yes (Hospitalization)
  Sender: FDA-Public Use
  Company Number: JP-AMGEN-JPNSP2013071855

PATIENT
  Age: 87 Year
  Sex: Male

DRUGS (5)
  1. MIMPARA [Suspect]
     Indication: RENAL FAILURE CHRONIC
     Dosage: 25 MG, QD
     Route: 048
     Dates: start: 20100308
  2. MIMPARA [Suspect]
     Indication: HYPERPARATHYROIDISM SECONDARY
  3. OXAROL [Concomitant]
     Dosage: 2.5 MUG, 3X/WEEK
     Route: 042
     Dates: start: 20100203
  4. ROCALTROL [Concomitant]
     Dosage: 0.5 MUG, 3X/WEEK
     Route: 042
     Dates: start: 20100521, end: 20110713
  5. PRECIPITATED CALCIUM CARBONATE [Concomitant]
     Dosage: 1 G, TID
     Route: 048
     Dates: start: 20100521

REACTIONS (1)
  - Gastric ulcer haemorrhage [Recovered/Resolved]
